FAERS Safety Report 8826034 (Version 2)
Quarter: 2012Q4

REPORT INFORMATION
  Report Type: Report from Study
  Country: US (occurrence: US)
  Receive Date: 20121005
  Receipt Date: 20121119
  Transmission Date: 20130627
  Serious: No
  Sender: FDA-Public Use
  Company Number: US-VERTEX PHARMACEUTICAL INC.-AE-2012-010886

PATIENT
  Sex: Female
  Weight: 64 kg

DRUGS (9)
  1. VX-770 [Suspect]
     Indication: CYSTIC FIBROSIS
     Dosage: 150 mg, UNK
     Route: 048
     Dates: start: 20120414
  2. ADVAIR [Concomitant]
     Dosage: UNK
  3. ZITHROMAX [Concomitant]
     Dosage: UNK
  4. VITAMIN D /00107901/ [Concomitant]
     Dosage: UNK
  5. PULMOZYME [Concomitant]
     Dosage: UNK
  6. ADEKS                              /06351501/ [Concomitant]
     Dosage: UNK
  7. VITAMIN B [Concomitant]
     Dosage: UNK
  8. ZENPEP [Concomitant]
     Dosage: UNK
  9. VENTOLIN                           /00139501/ [Concomitant]
     Dosage: UNK

REACTIONS (2)
  - Weight increased [Not Recovered/Not Resolved]
  - Increased appetite [Unknown]
